FAERS Safety Report 5122293-8 (Version None)
Quarter: 2006Q4

REPORT INFORMATION
  Report Type: 
  Country: None (occurrence: None)
  Receive Date: 20061003
  Receipt Date: 20060823
  Transmission Date: 20070319
  Serious: Yes (Hospitalization)
  Sender: FDA-Public Use
  Company Number: 2006SP000141

PATIENT
  Sex: Female

DRUGS (2)
  1. RIBAVIRIN [Suspect]
     Indication: HEPATITIS C
     Dates: start: 20060722
  2. PEGASYS [Suspect]
     Indication: HEPATITIS C
     Dates: start: 20060722

REACTIONS (4)
  - BACTERAEMIA [None]
  - PELVIC PAIN [None]
  - PYREXIA [None]
  - WHITE BLOOD CELL COUNT DECREASED [None]
